FAERS Safety Report 15524645 (Version 1)
Quarter: 2018Q4

REPORT INFORMATION
  Report Type: Spontaneous
  Country: US (occurrence: US)
  Receive Date: 20181019
  Receipt Date: 20181019
  Transmission Date: 20190205
  Serious: No
  Sender: FDA-Public Use
  Company Number: US-ALKERMES INC.-ALK-2018-005656

PATIENT
  Age: 50 Year
  Sex: Male
  Weight: 122.45 kg

DRUGS (1)
  1. VIVITROL [Suspect]
     Active Substance: NALTREXONE
     Indication: ALCOHOLISM
     Dosage: 380 MG, QMO
     Route: 030
     Dates: start: 201803, end: 20180915

REACTIONS (4)
  - Blister rupture [Recovering/Resolving]
  - Rash pruritic [Recovering/Resolving]
  - Dizziness [Not Recovered/Not Resolved]
  - Rash vesicular [Recovering/Resolving]

NARRATIVE: CASE EVENT DATE: 2018
